FAERS Safety Report 5119145-6 (Version None)
Quarter: 2006Q3

REPORT INFORMATION
  Report Type: 
  Country: None (occurrence: None)
  Receive Date: 20060929
  Receipt Date: 20060929
  Transmission Date: 20061208
  Serious: Yes (Other)
  Sender: FDA-Public Use
  Company Number: None

PATIENT
  Age: 87 Year
  Sex: Female
  Weight: 87.9978 kg

DRUGS (1)
  1. LYRICA [Suspect]
     Indication: NEUROPATHY PERIPHERAL
     Dosage: 50MG ONCE DAILY PO
     Route: 048
     Dates: start: 20060922, end: 20060926

REACTIONS (3)
  - DIZZINESS [None]
  - DYSARTHRIA [None]
  - TREMOR [None]
